FAERS Safety Report 4980326-3 (Version None)
Quarter: 2006Q2

REPORT INFORMATION
  Report Type: 
  Country: None (occurrence: None)
  Receive Date: 20060421
  Receipt Date: 20060421
  Transmission Date: 20061013
  Serious: Yes (Other)
  Sender: FDA-Public Use
  Company Number: None

PATIENT
  Age: 44 Year
  Sex: Female
  Weight: 100.6985 kg

DRUGS (1)
  1. ADVAIR DISKUS 500/50 [Suspect]
     Indication: ASTHMA
     Dosage: 1   BID   PO
     Route: 048
     Dates: start: 20030101, end: 20060401

REACTIONS (6)
  - CHRONIC FATIGUE SYNDROME [None]
  - DEPRESSION [None]
  - FIBROMYALGIA [None]
  - FUNGAL INFECTION [None]
  - MYALGIA [None]
  - WEIGHT INCREASED [None]
